FAERS Safety Report 7208370-6 (Version None)
Quarter: 2011Q1

REPORT INFORMATION
  Report Type: 
  Country: None (occurrence: None)
  Receive Date: 20110104
  Receipt Date: 20101222
  Transmission Date: 20110831
  Serious: Yes (Hospitalization, Other)
  Sender: FDA-Public Use
  Company Number: PHHY2009JP48542

PATIENT
  Age: 62 Year
  Sex: Female

DRUGS (1)
  1. CARBAMAZEPINE [Suspect]
     Indication: CONVULSION
     Dosage: 200 MG DAILY

REACTIONS (15)
  - PYREXIA [None]
  - DRUG RASH WITH EOSINOPHILIA AND SYSTEMIC SYMPTOMS [None]
  - HUMAN HERPES VIRUS 6 SEROLOGY POSITIVE [None]
  - CYTOMEGALOVIRUS TEST POSITIVE [None]
  - SKIN HYPERPIGMENTATION [None]
  - HYPERKERATOSIS [None]
  - PARAKERATOSIS [None]
  - PNEUMONIA [None]
  - ACANTHOSIS [None]
  - RASH [None]
  - LYMPHADENOPATHY [None]
  - FACE OEDEMA [None]
  - OEDEMA PERIPHERAL [None]
  - LYMPHOCYTOSIS [None]
  - DERMATITIS EXFOLIATIVE [None]
